FAERS Safety Report 19619874 (Version 1)
Quarter: 2021Q3

REPORT INFORMATION
  Report Type: Spontaneous
  Country: US (occurrence: US)
  Receive Date: 20210728
  Receipt Date: 20210728
  Transmission Date: 20211014
  Serious: No
  Sender: FDA-Public Use
  Company Number: US-ROCHE-2736972

PATIENT
  Age: 60 Year
  Sex: Female

DRUGS (2)
  1. XELODA [Suspect]
     Active Substance: CAPECITABINE
     Indication: RECTAL CANCER
     Dosage: 3 BID 14 DAYS ON 7 DAY OFF CYCLE
     Route: 048
     Dates: start: 202010
  2. XELODA [Suspect]
     Active Substance: CAPECITABINE
     Dosage: 2 BID 14 DAYS ON 7 DAY OFF CYCLE
     Route: 048
     Dates: start: 202010

REACTIONS (3)
  - Palmar-plantar erythrodysaesthesia syndrome [Unknown]
  - Slow speech [Unknown]
  - Fatigue [Unknown]

NARRATIVE: CASE EVENT DATE: 20201127
